FAERS Safety Report 6303091-6 (Version None)
Quarter: 2009Q3

REPORT INFORMATION
  Report Type: 
  Country: None (occurrence: None)
  Receive Date: 20090810
  Receipt Date: 20090726
  Transmission Date: 20100115
  Serious: Yes (Other)
  Sender: FDA-Public Use
  Company Number: GB-ROCHE-647627

PATIENT
  Age: 5 Year
  Sex: Male

DRUGS (1)
  1. TAMIFLU [Suspect]
     Indication: INFLUENZA SEROLOGY POSITIVE
     Route: 065

REACTIONS (8)
  - ABNORMAL BEHAVIOUR [None]
  - AGGRESSION [None]
  - ILL-DEFINED DISORDER [None]
  - INSOMNIA [None]
  - LIP PAIN [None]
  - NIGHTMARE [None]
  - PAIN IN EXTREMITY [None]
  - PRURITUS GENERALISED [None]
